FAERS Safety Report 23921250 (Version 2)
Quarter: 2024Q3

REPORT INFORMATION
  Report Type: Report from Study
  Country: US (occurrence: US)
  Receive Date: 20240530
  Receipt Date: 20240705
  Transmission Date: 20241017
  Serious: No
  Sender: ALEXION PHARMACEUTICALS
  Company Number: US-AstraZeneca-CH-00632311A

PATIENT
  Age: 67 Year
  Sex: Female

DRUGS (1)
  1. STRENSIQ [Suspect]
     Active Substance: ASFOTASE ALFA
     Indication: Hypophosphatasia
     Dosage: UNK
     Route: 058

REACTIONS (8)
  - Arthralgia [Recovered/Resolved]
  - Arthritis [Unknown]
  - Oedema peripheral [Recovered/Resolved]
  - Cellulitis [Recovered/Resolved]
  - Sleep apnoea syndrome [Unknown]
  - Red blood cell sedimentation rate increased [Recovering/Resolving]
  - Memory impairment [Unknown]
  - Immune system disorder [Unknown]

NARRATIVE: CASE EVENT DATE: 20240101
